FAERS Safety Report 25758053 (Version 2)
Quarter: 2025Q4

REPORT INFORMATION
  Report Type: Report from Study
  Country: US (occurrence: US)
  Receive Date: 20250903
  Receipt Date: 20251006
  Transmission Date: 20260119
  Serious: Yes (Hospitalization, Other)
  Sender: ABBVIE
  Company Number: US-ABBVIE-6443028

PATIENT
  Age: 54 Year
  Sex: Male
  Weight: 124.73 kg

DRUGS (2)
  1. SKYRIZI [Suspect]
     Active Substance: RISANKIZUMAB-RZAA
     Indication: Psoriatic arthropathy
     Dosage: STRENGTH: 150MG/ML, INJECT 150MG (1INJECTOR) SUBCUTANEOUSLY EVERY 12 WEEKS
     Route: 058
     Dates: start: 20250305, end: 20250718
  2. SKYRIZI [Suspect]
     Active Substance: RISANKIZUMAB-RZAA
     Indication: Psoriasis
     Dosage: STRENGTH: 150MG/ML, INJECT 150MG (1INJECTOR) SUBCUTANEOUSLY EVERY 12 WEEKS?FIRST ADMIN DATE: 2025
     Route: 058

REACTIONS (6)
  - Diplopia [Recovered/Resolved]
  - Brain operation [Recovered/Resolved]
  - Optic nerve compression [Recovered/Resolved]
  - Blood pressure measurement [Unknown]
  - Blood cholesterol [Unknown]
  - Pain [Unknown]

NARRATIVE: CASE EVENT DATE: 20250827
